FAERS Safety Report 4526048-4 (Version None)
Quarter: 2004Q4

REPORT INFORMATION
  Report Type: 
  Country: None (occurrence: None)
  Receive Date: 20041129
  Receipt Date: 20040812
  Transmission Date: 20050328
  Serious: Yes (Hospitalization)
  Sender: FDA-Public Use
  Company Number: USA040875334

PATIENT
  Age: 52 Year
  Sex: Female
  Weight: 91 kg

DRUGS (8)
  1. ZYPREXA [Suspect]
     Indication: ANXIETY
     Dosage: 10 MG DAY
     Dates: start: 20020101, end: 20040701
  2. PROZAC [Suspect]
     Indication: DEPRESSION
     Dosage: 80 MG IN THE MORNING
     Dates: start: 19920101, end: 20030101
  3. LEXAPRO [Concomitant]
  4. ABILIFY [Concomitant]
  5. AMBIEN [Concomitant]
  6. VIOXX [Concomitant]
  7. DURAGESIC [Concomitant]
  8. RITALIN [Concomitant]

REACTIONS (8)
  - ANTIDEPRESSANT DRUG LEVEL INCREASED [None]
  - ANXIETY [None]
  - BLOOD GLUCOSE INCREASED [None]
  - DEPRESSION [None]
  - HALLUCINATIONS, MIXED [None]
  - MENTAL IMPAIRMENT [None]
  - NOCTURIA [None]
  - WEIGHT INCREASED [None]
